FAERS Safety Report 7893121-2 (Version None)
Quarter: 2011Q4

REPORT INFORMATION
  Report Type: 
  Country: None (occurrence: None)
  Receive Date: 20111104
  Receipt Date: 20111025
  Transmission Date: 20120403
  Serious: Yes (Hospitalization)
  Sender: FDA-Public Use
  Company Number: US-BAYER-2011-044928

PATIENT
  Age: 20 Year
  Sex: Female
  Weight: 77 kg

DRUGS (4)
  1. YAZ [Suspect]
     Indication: CONTRACEPTION
     Dosage: UNK
     Dates: start: 20080101, end: 20090601
  2. YASMIN [Suspect]
     Indication: CONTRACEPTION
     Dosage: UNK
     Dates: start: 20071001, end: 20071201
  3. YASMIN [Suspect]
     Indication: PREMENSTRUAL SYNDROME
  4. YAZ [Suspect]
     Indication: PREMENSTRUAL SYNDROME

REACTIONS (11)
  - POOR PERIPHERAL CIRCULATION [None]
  - PAIN [None]
  - ANXIETY [None]
  - ABASIA [None]
  - SWELLING [None]
  - FEAR [None]
  - MOVEMENT DISORDER [None]
  - DEEP VEIN THROMBOSIS [None]
  - INJURY [None]
  - ANHEDONIA [None]
  - MENTAL DISORDER [None]
